FAERS Safety Report 13115428 (Version 1)
Quarter: 2017Q1

REPORT INFORMATION
  Report Type: Spontaneous
  Country: US (occurrence: US)
  Receive Date: 20170113
  Receipt Date: 20170113
  Transmission Date: 20170428
  Serious: Yes (Other)
  Sender: FDA-Public Use
  Company Number: US-BAUSCH-BL-2017-000855

PATIENT
  Age: 67 Year
  Sex: Female
  Weight: 52.21 kg

DRUGS (1)
  1. RELISTOR [Suspect]
     Active Substance: METHYLNALTREXONE BROMIDE
     Indication: GASTROINTESTINAL HYPOMOTILITY
     Dosage: 12 MG/0.6 ML?AS NEEDED.
     Route: 058
     Dates: start: 20161205, end: 20170109

REACTIONS (3)
  - Hypoglycaemia [Recovered/Resolved]
  - Off label use [Unknown]
  - Therapeutic response unexpected [Unknown]
